FAERS Safety Report 6309472-9 (Version None)
Quarter: 2009Q3

REPORT INFORMATION
  Report Type: 
  Country: None (occurrence: None)
  Receive Date: 20090811
  Receipt Date: 20090728
  Transmission Date: 20100115
  Serious: Yes (Hospitalization)
  Sender: FDA-Public Use
  Company Number: DEP_00278_2009

PATIENT
  Age: 73 Year
  Sex: Female
  Weight: 33.5 kg

DRUGS (3)
  1. METFORMIN HCL [Suspect]
     Indication: TYPE 2 DIABETES MELLITUS
     Dosage: (250 MG BID, [ONCE AFTER THE MORNING MEAL AND ONCE AFTER THE EVENING MEAL] ORAL)
     Route: 048
  2. NATEGLINIDE [Suspect]
     Indication: TYPE 2 DIABETES MELLITUS
     Dosage: (90 MG TID, [BEFORE MEALS] ORAL)
     Route: 048
  3. PIOGLITAZONE HCL [Suspect]
     Indication: TYPE 2 DIABETES MELLITUS
     Dosage: (15 MG QD, [BEFORE MEAL] ORAL)
     Route: 048

REACTIONS (12)
  - ABDOMINAL PAIN [None]
  - BLOOD GLUCOSE INCREASED [None]
  - DECREASED APPETITE [None]
  - DRUG INTERACTION [None]
  - FATIGUE [None]
  - GLYCOSYLATED HAEMOGLOBIN INCREASED [None]
  - HEPATITIS ACUTE [None]
  - HEPATOTOXICITY [None]
  - JAUNDICE [None]
  - MIXED LIVER INJURY [None]
  - NAUSEA [None]
  - VOMITING [None]
